FAERS Safety Report 12790038 (Version 10)
Quarter: 2019Q4

REPORT INFORMATION
  Report Type: Spontaneous
  Country: US (occurrence: US)
  Receive Date: 20160928
  Receipt Date: 20191108
  Transmission Date: 20200122
  Serious: Yes (Hospitalization)
  Sender: FDA-Public Use
  Company Number: US-PFIZER INC-2016449260

PATIENT
  Age: 58 Year
  Sex: Female
  Weight: 105 kg

DRUGS (24)
  1. EXALGO [Concomitant]
     Active Substance: HYDROMORPHONE HYDROCHLORIDE
     Indication: PAIN
     Dosage: 32 MG, 1X/DAY
     Route: 048
  2. OMEPRAZOLE. [Concomitant]
     Active Substance: OMEPRAZOLE
     Dosage: 40MG CAPSULE BY MOUTH DAILY, SOMETIMES ADDS A DOSE AT NIGHT
     Route: 048
  3. LEFLUNOMIDE. [Concomitant]
     Active Substance: LEFLUNOMIDE
     Indication: RHEUMATOID ARTHRITIS
     Dosage: 20 MG, DAILY
     Route: 048
  4. LYRICA [Suspect]
     Active Substance: PREGABALIN
     Indication: NEUROPATHY PERIPHERAL
     Dosage: 400 MG, 2X/DAY (200 MG, TWO IN THE MORNING, TWO IN THE EVENING)
     Route: 048
     Dates: start: 20190212, end: 2019
  5. ACTEMRA [Concomitant]
     Active Substance: TOCILIZUMAB
     Indication: RHEUMATOID ARTHRITIS
     Dosage: INTRAVENOUS INFUSION EVERY FOUR WEEKS. DOSAGE IS BASED ON WEIGHT.
     Route: 042
  6. ZYRTEC [Concomitant]
     Active Substance: CETIRIZINE HYDROCHLORIDE
     Indication: HYPERSENSITIVITY
     Dosage: 10 MG, 1X/DAY
     Route: 048
  7. LYRICA [Suspect]
     Active Substance: PREGABALIN
     Indication: FIBROMYALGIA
     Dosage: 300 MG, 2X/DAY
     Route: 048
     Dates: start: 2006, end: 2007
  8. HYDROMORPHONE [Concomitant]
     Active Substance: HYDROMORPHONE
     Indication: BREAKTHROUGH PAIN
     Dosage: 4MG TABLET BY MOUTH THREE TIMES DAILY IF NECESSARY
  9. LEFLUNOMIDE. [Concomitant]
     Active Substance: LEFLUNOMIDE
     Indication: BREAKTHROUGH PAIN
  10. PROVENTIL HSA [Concomitant]
     Indication: HYPERSENSITIVITY
  11. CLONAZEPAM. [Concomitant]
     Active Substance: CLONAZEPAM
     Indication: ANXIETY
     Dosage: 1 MG, DAILY
     Route: 048
  12. PILOCARPINE. [Concomitant]
     Active Substance: PILOCARPINE
     Indication: SJOGREN^S SYNDROME
     Dosage: 7.5 MG, 3X/DAY
     Route: 048
  13. AMITRIPTYLINE [Concomitant]
     Active Substance: AMITRIPTYLINE
     Indication: INSOMNIA
     Dosage: 100MG TABLET BY MOUTH AT BEDTIME
     Route: 048
  14. NASONEX [Concomitant]
     Active Substance: MOMETASONE FUROATE
     Dosage: UNK, 1X/DAY,2 PUFFS
  15. ALLOPURINOL. [Concomitant]
     Active Substance: ALLOPURINOL
     Indication: GOUT
     Dosage: 300 MG, DAILY
     Route: 048
  16. DIAZEPAM. [Concomitant]
     Active Substance: DIAZEPAM
     Indication: MUSCLE SPASMS
     Dosage: 10 MG, AS NEEDED
  17. SINGULAIR [Concomitant]
     Active Substance: MONTELUKAST SODIUM
     Indication: ASTHMA
     Dosage: 10 MG, DAILY
     Route: 048
  18. SINGULAIR [Concomitant]
     Active Substance: MONTELUKAST SODIUM
     Indication: HYPERSENSITIVITY
  19. OXYCONTIN [Concomitant]
     Active Substance: OXYCODONE HYDROCHLORIDE
     Dosage: UNK
  20. PROVENTIL HSA [Concomitant]
     Indication: ASTHMA
     Dosage: TWO PUFFS BY MOUTH UP TO 4 TIMES DAILY AS NEEDED
     Route: 048
  21. FLOVENT [Concomitant]
     Active Substance: FLUTICASONE PROPIONATE
     Indication: ASTHMA
     Dosage: 220 MG, 2X/DAY (2 PUFFS TWICE DAILY)
  22. ATORVASTATIN [Concomitant]
     Active Substance: ATORVASTATIN
     Indication: BLOOD TRIGLYCERIDES INCREASED
     Dosage: 80 MG, DAILY
     Route: 048
  23. EXALGO [Concomitant]
     Active Substance: HYDROMORPHONE HYDROCHLORIDE
     Indication: CONSTIPATION
  24. OXYCODONE [Concomitant]
     Active Substance: OXYCODONE
     Dosage: UNK

REACTIONS (14)
  - Balance disorder [Unknown]
  - Impaired work ability [Unknown]
  - Nausea [Recovered/Resolved]
  - Musculoskeletal stiffness [Recovering/Resolving]
  - Hyperhidrosis [Not Recovered/Not Resolved]
  - Memory impairment [Not Recovered/Not Resolved]
  - Pyrexia [Unknown]
  - Fall [Recovered/Resolved with Sequelae]
  - Influenza like illness [Unknown]
  - Head deformity [Unknown]
  - Headache [Recovering/Resolving]
  - Drug ineffective [Unknown]
  - Pain [Recovered/Resolved]
  - Prescribed overdose [Unknown]

NARRATIVE: CASE EVENT DATE: 201608
